FAERS Safety Report 6579588-0 (Version None)
Quarter: 2010Q1

REPORT INFORMATION
  Report Type: 
  Country: None (occurrence: None)
  Receive Date: 20100212
  Receipt Date: 20100202
  Transmission Date: 20100710
  Serious: Yes (Death)
  Sender: FDA-Public Use
  Company Number: US-PFIZER INC-2009271681

PATIENT
  Sex: Male
  Weight: 53.515 kg

DRUGS (6)
  1. CAMPTOSAR [Suspect]
     Indication: SMALL CELL LUNG CANCER EXTENSIVE STAGE
     Dosage: 100 MG/M2, 165 MG
     Dates: start: 20090803, end: 20090810
  2. DECADRON [Concomitant]
     Dosage: 10 MG
     Dates: start: 20090803, end: 20090810
  3. ZOFRAN [Concomitant]
     Dosage: 24 MG
     Dates: start: 20090803, end: 20090810
  4. OXYCONTIN [Concomitant]
     Dosage: 20 MG
     Dates: start: 20090701
  5. SODIUM CHLORIDE [Concomitant]
     Dosage: 1 G
     Dates: start: 20090701
  6. IMODIUM A-D [Concomitant]
     Dosage: AS NEEDED
     Dates: start: 20090801

REACTIONS (1)
  - DEATH [None]
